FAERS Safety Report 8395856-4 (Version None)
Quarter: 2012Q2

REPORT INFORMATION
  Report Type: 
  Country: None (occurrence: None)
  Receive Date: 20120529
  Receipt Date: 20120529
  Transmission Date: 20120825
  Serious: Yes (Disabling)
  Sender: FDA-Public Use
  Company Number: None

PATIENT
  Age: 42 Year
  Sex: Male
  Weight: 97.5234 kg

DRUGS (1)
  1. PROPECIA [Suspect]
     Indication: ALOPECIA
     Dosage: 1MG DAILY PO
     Route: 048
     Dates: start: 20050105, end: 20120405

REACTIONS (9)
  - MUSCLE ATROPHY [None]
  - ERECTILE DYSFUNCTION [None]
  - FATIGUE [None]
  - ARTHRALGIA [None]
  - DISTURBANCE IN ATTENTION [None]
  - LOSS OF LIBIDO [None]
  - INSOMNIA [None]
  - BREAST DISORDER MALE [None]
  - DEPRESSION [None]
